FAERS Safety Report 12989721 (Version 1)
Quarter: 2016Q4

REPORT INFORMATION
  Report Type: Spontaneous
  Country: US (occurrence: US)
  Receive Date: 20161201
  Receipt Date: 20161201
  Transmission Date: 20170207
  Serious: Yes (Other)
  Sender: FDA-Public Use
  Company Number: US-ZYDUS-012791

PATIENT
  Age: 48 Year
  Sex: Male

DRUGS (1)
  1. AZATHIOPRINE. [Suspect]
     Active Substance: AZATHIOPRINE
     Indication: COLITIS ULCERATIVE
     Route: 065

REACTIONS (8)
  - Pyrexia [Unknown]
  - Haematochezia [Unknown]
  - Kaposi^s sarcoma [Unknown]
  - Diverticulitis [Recovered/Resolved]
  - Colitis [Unknown]
  - Human herpesvirus 8 infection [Unknown]
  - Abscess [Unknown]
  - Klebsiella infection [Recovered/Resolved]
